FAERS Safety Report 4372659-9 (Version None)
Quarter: 2004Q2

REPORT INFORMATION
  Report Type: 
  Country: None (occurrence: None)
  Receive Date: 20040526
  Receipt Date: 20040519
  Transmission Date: 20050107
  Serious: Yes (Death)
  Sender: FDA-Public Use
  Company Number: US-JNJFOC-20040504759

PATIENT
  Age: 23 Year
  Sex: Female
  Weight: 47.6277 kg

DRUGS (6)
  1. LEVAQUIN [Suspect]
     Indication: STREPTOCOCCAL INFECTION
     Dosage: 500 MG
     Dates: start: 20030306, end: 20030311
  2. AUGMENTIN [Concomitant]
  3. ALTACE [Concomitant]
  4. CONCERTA [Concomitant]
  5. ORTHO EVRA [Concomitant]
  6. PROZAC [Concomitant]

REACTIONS (2)
  - AORTIC DISSECTION [None]
  - PERICARDIAL HAEMORRHAGE [None]
